FAERS Safety Report 20595315 (Version 2)
Quarter: 2022Q2

REPORT INFORMATION
  Report Type: Spontaneous
  Country: TW (occurrence: TW)
  Receive Date: 20220315
  Receipt Date: 20220420
  Transmission Date: 20220720
  Serious: Yes (Death)
  Sender: FDA-Public Use
  Company Number: TW-BAYER-2022A035730

PATIENT
  Age: 97 Year
  Sex: Male

DRUGS (2)
  1. XOFIGO [Suspect]
     Active Substance: RADIUM RA-223 DICHLORIDE
     Indication: Hormone-refractory prostate cancer
     Dosage: UNK
     Dates: start: 20220119, end: 20220119
  2. XOFIGO [Suspect]
     Active Substance: RADIUM RA-223 DICHLORIDE
     Indication: Hormone-refractory prostate cancer
     Dosage: UNK
     Dates: start: 20220223, end: 20220223

REACTIONS (1)
  - Death [Fatal]

NARRATIVE: CASE EVENT DATE: 20220101
